FAERS Safety Report 7190613-9 (Version None)
Quarter: 2010Q4

REPORT INFORMATION
  Report Type: 
  Country: None (occurrence: None)
  Receive Date: 20101223
  Receipt Date: 20101217
  Transmission Date: 20110411
  Serious: Yes (Hospitalization)
  Sender: FDA-Public Use
  Company Number: US-JNJFOC-20101206627

PATIENT
  Sex: Female
  Weight: 41.73 kg

DRUGS (3)
  1. INVEGA [Suspect]
     Indication: MOOD SWINGS
     Route: 048
  2. LEXAPRO [Concomitant]
     Indication: DEPRESSION
     Route: 048
  3. WELLBUTRIN [Concomitant]
     Indication: DEPRESSION
     Route: 048

REACTIONS (11)
  - BURNING MOUTH SYNDROME [None]
  - DYSKINESIA [None]
  - GASTROINTESTINAL DISORDER [None]
  - HEADACHE [None]
  - MUSCLE TIGHTNESS [None]
  - MUSCLE TWITCHING [None]
  - NAUSEA [None]
  - NEPHROLITHIASIS [None]
  - RESTLESSNESS [None]
  - TONGUE ULCERATION [None]
  - WEIGHT DECREASED [None]
